FAERS Safety Report 13675812 (Version 2)
Quarter: 2017Q2

REPORT INFORMATION
  Report Type: Spontaneous
  Country: US (occurrence: US)
  Receive Date: 20170621
  Receipt Date: 20170628
  Transmission Date: 20170830
  Serious: Yes (Hospitalization)
  Sender: FDA-Public Use
  Company Number: PHHY2017US090103

PATIENT
  Age: 38 Year
  Sex: Female

DRUGS (2)
  1. PACLITAXEL. [Suspect]
     Active Substance: PACLITAXEL
     Indication: CERVIX CARCINOMA STAGE II
     Dosage: 135 MG/M2, UNK
     Route: 042
  2. TOPOTECAN [Suspect]
     Active Substance: TOPOTECAN HYDROCHLORIDE
     Indication: CERVIX CARCINOMA STAGE II
     Dosage: 0.75 MG/M2, UNK
     Route: 042

REACTIONS (4)
  - Pelvic pain [Unknown]
  - Malignant neoplasm progression [Unknown]
  - Cervix carcinoma stage II [Unknown]
  - Obstructive uropathy [Unknown]
